FAERS Safety Report 16591898 (Version 1)
Quarter: 2019Q3

REPORT INFORMATION
  Report Type: Spontaneous
  Country: US (occurrence: US)
  Receive Date: 20190604
  Receipt Date: 20190604
  Transmission Date: 20191004
  Serious: Yes (Other)
  Sender: FDA-Public Use
  Company Number: None

PATIENT
  Age: 65 Year
  Sex: Male
  Weight: 77.11 kg

DRUGS (12)
  1. ENZYMES [Concomitant]
  2. ALA [Concomitant]
  3. SPIRU-TEIN W/100% ROV VITAMINS [Concomitant]
  4. TRI-PART PROTEIN [Concomitant]
  5. FIBER [Concomitant]
     Active Substance: PSYLLIUM HUSK
  6. LISINOPRIL GENERIC FOR ZESTRILL [Suspect]
     Active Substance: LISINOPRIL
     Indication: HYPERTENSION
     Dosage: ?          QUANTITY:1 DF DOSAGE FORM;?
     Route: 048
     Dates: start: 20181006, end: 20181015
  7. EMERGENC OMEGA-3S [Concomitant]
  8. NATURES PLUS [Concomitant]
  9. ERA [Concomitant]
  10. DHA [Concomitant]
     Active Substance: DIETARY SUPPLEMENT
  11. DIAZEPAM. [Concomitant]
     Active Substance: DIAZEPAM
  12. MINERALS [Concomitant]
     Active Substance: MINERALS

REACTIONS (4)
  - Aggression [None]
  - Product substitution issue [None]
  - Blood pressure increased [None]
  - Agitation [None]

NARRATIVE: CASE EVENT DATE: 20181014
